FAERS Safety Report 8990572 (Version 2)
Quarter: 2013Q1

REPORT INFORMATION
  Report Type: Spontaneous
  Country: US (occurrence: US)
  Receive Date: 20121228
  Receipt Date: 20130122
  Transmission Date: 20140127
  Serious: No
  Sender: FDA-Public Use
  Company Number: US-009507513-1212USA010026

PATIENT
  Sex: Female

DRUGS (2)
  1. PROVENTIL [Suspect]
     Indication: ASTHMA
     Dosage: UNK
     Route: 055
  2. PROVENTIL [Suspect]
     Indication: HYPERSENSITIVITY

REACTIONS (2)
  - Cough [Not Recovered/Not Resolved]
  - Product quality issue [Unknown]
